FAERS Safety Report 13949961 (Version 1)
Quarter: 2017Q3

REPORT INFORMATION
  Report Type: Spontaneous
  Country: FR (occurrence: FR)
  Receive Date: 20170908
  Receipt Date: 20170908
  Transmission Date: 20171128
  Serious: Yes (Death, Life-Threatening)
  Sender: FDA-Public Use
  Company Number: FR-SA-2017SA163838

PATIENT
  Age: 60 Year
  Sex: Female

DRUGS (3)
  1. DOLIPRANE [Suspect]
     Active Substance: ACETAMINOPHEN
     Route: 065
  2. INEXIUM [Suspect]
     Active Substance: ESOMEPRAZOLE
     Route: 065
  3. LOVENOX [Suspect]
     Active Substance: ENOXAPARIN SODIUM
     Route: 065

REACTIONS (3)
  - Pulmonary embolism [Unknown]
  - Paraesthesia [Unknown]
  - Death [Fatal]
